FAERS Safety Report 21702618 (Version 1)
Quarter: 2022Q4

REPORT INFORMATION
  Report Type: Spontaneous
  Country: US (occurrence: US)
  Receive Date: 20221208
  Receipt Date: 20221208
  Transmission Date: 20230113
  Serious: No
  Sender: FDA-Public Use
  Company Number: US-IBSA PHARMA INC.-2022IBS000215

PATIENT

DRUGS (3)
  1. LEVOTHYROXINE SODIUM [Suspect]
     Active Substance: LEVOTHYROXINE SODIUM
     Indication: Thyroid cancer
     Dosage: 200 MICROGRAM, QD
     Route: 048
  2. LEVOTHYROXINE SODIUM [Suspect]
     Active Substance: LEVOTHYROXINE SODIUM
     Dosage: 112 MICROGRAM, QD
     Route: 048
  3. COSENTYX [Concomitant]
     Active Substance: SECUKINUMAB
     Indication: Psoriasis
     Dosage: 300 MILLIGRAM, QMONTH
     Dates: start: 202112

REACTIONS (3)
  - Upper respiratory tract infection [Unknown]
  - Restlessness [Unknown]
  - Thyroid disorder [Unknown]
